FAERS Safety Report 4295631-6 (Version None)
Quarter: 2004Q1

REPORT INFORMATION
  Report Type: 
  Country: None (occurrence: None)
  Receive Date: 20040216
  Receipt Date: 20030804
  Transmission Date: 20041129
  Serious: No
  Sender: FDA-Public Use
  Company Number: US-GLAXOSMITHKLINE-A0419364A

PATIENT
  Age: 64 Year
  Sex: Male

DRUGS (1)
  1. PAXIL [Suspect]
     Indication: FAMILY STRESS
     Route: 048
     Dates: start: 19990101

REACTIONS (2)
  - DIZZINESS [None]
  - NAUSEA [None]
